FAERS Safety Report 7603285-3 (Version None)
Quarter: 2011Q3

REPORT INFORMATION
  Report Type: 
  Country: None (occurrence: None)
  Receive Date: 20110711
  Receipt Date: 20110711
  Transmission Date: 20111222
  Serious: Yes (Other)
  Sender: FDA-Public Use
  Company Number: None

PATIENT
  Sex: Female
  Weight: 56.246 kg

DRUGS (9)
  1. PERCOCET [Concomitant]
  2. MULTIPLE VITAMIN [Concomitant]
  3. VIMPAT [Concomitant]
  4. LEVETIRACETAM [Suspect]
     Indication: COMPLEX PARTIAL SEIZURES
     Dosage: 2000 MG BID, PO
     Route: 048
     Dates: start: 20110601, end: 20110701
  5. LEVETIRACETAM [Suspect]
     Indication: EPILEPSY
     Dosage: 2000 MG BID, PO
     Route: 048
     Dates: start: 20110601, end: 20110701
  6. LEVETIRACETAM [Suspect]
     Indication: PARTIAL SEIZURES
     Dosage: 2000 MG BID, PO
     Route: 048
     Dates: start: 20110601, end: 20110701
  7. CARBATROL [Concomitant]
  8. CALCIUM CARBONATE [Concomitant]
  9. CLONAZEPAM [Concomitant]

REACTIONS (2)
  - CONVULSION [None]
  - CONDITION AGGRAVATED [None]
